FAERS Safety Report 5186961-4 (Version None)
Quarter: 2006Q4

REPORT INFORMATION
  Report Type: 
  Country: None (occurrence: None)
  Receive Date: 20061213
  Receipt Date: 20061116
  Transmission Date: 20070319
  Serious: Yes (Other)
  Sender: FDA-Public Use
  Company Number: 2006143698

PATIENT
  Age: 38 Year
  Sex: Male

DRUGS (10)
  1. FLUCONAZOLE [Suspect]
     Dosage: 400 MG (400 MG, 1 IN 1 D), INTRAVENOUS
     Route: 042
  2. HYDROCHLOROTHIAZIDE [Concomitant]
  3. LOPRESSOR [Concomitant]
  4. ASPIRIN [Concomitant]
  5. AMPICILLIN [Concomitant]
  6. SULBACTAM (SULBACTAM) [Concomitant]
  7. AZITHROMYCIN [Concomitant]
  8. VANCOMYCIN [Concomitant]
  9. IMIPENEM (IMIPENEM) [Concomitant]
  10. SULFAMETHOXAZOLE + TRIMETHOPRIM [Concomitant]

REACTIONS (3)
  - ADRENAL INSUFFICIENCY [None]
  - BLOOD POTASSIUM INCREASED [None]
  - BLOOD SODIUM DECREASED [None]
